FAERS Safety Report 21382801 (Version 1)
Quarter: 2022Q3

REPORT INFORMATION
  Report Type: Spontaneous
  Country: US (occurrence: US)
  Receive Date: 20220927
  Receipt Date: 20220927
  Transmission Date: 20221027
  Serious: No
  Sender: FDA-Public Use
  Company Number: US-SA-SAC20220921000473

PATIENT
  Sex: Female

DRUGS (4)
  1. DUPIXENT [Suspect]
     Active Substance: DUPILUMAB
     Indication: Dermatitis atopic
     Dosage: 300MG QOW
     Route: 058
     Dates: start: 202205, end: 202209
  2. CALCIUM [Concomitant]
     Active Substance: CALCIUM
     Dosage: 600 TAB 600-200M
  3. IBUPROFEN [Concomitant]
     Active Substance: IBUPROFEN
     Dosage: 750MG
  4. VITAMIN D3 [Concomitant]
     Active Substance: CHOLECALCIFEROL

REACTIONS (2)
  - Urinary tract infection [Not Recovered/Not Resolved]
  - Pollakiuria [Unknown]
